FAERS Safety Report 22645140 (Version 1)
Quarter: 2023Q2

REPORT INFORMATION
  Report Type: Spontaneous
  Country: US (occurrence: US)
  Receive Date: 20230627
  Receipt Date: 20230627
  Transmission Date: 20230721
  Serious: No
  Sender: FDA-Public Use
  Company Number: US-SA-SAC20230622001346

PATIENT
  Age: 57 Year
  Sex: Female

DRUGS (1)
  1. DUPIXENT [Suspect]
     Active Substance: DUPILUMAB
     Indication: Eczema
     Dosage: 300 MG QOW
     Route: 058
     Dates: start: 20230428

REACTIONS (4)
  - Lacrimation increased [Not Recovered/Not Resolved]
  - Oropharyngeal discomfort [Not Recovered/Not Resolved]
  - Tonsillar hypertrophy [Not Recovered/Not Resolved]
  - Discomfort [Not Recovered/Not Resolved]
